FAERS Safety Report 18795298 (Version 1)
Quarter: 2021Q1

REPORT INFORMATION
  Report Type: Spontaneous
  Country: US (occurrence: US)
  Receive Date: 20210127
  Receipt Date: 20210127
  Transmission Date: 20210419
  Serious: No
  Sender: FDA-Public Use
  Company Number: US-MYLANLABS-2021M1003563

PATIENT
  Sex: Male
  Weight: 29 kg

DRUGS (1)
  1. SCOPOLAMINE TRANSDERMAL SYSTEM [Suspect]
     Active Substance: SCOPOLAMINE
     Indication: DROOLING
     Dosage: EVERY 48 HOURS
     Route: 062

REACTIONS (1)
  - Drug ineffective for unapproved indication [Not Recovered/Not Resolved]
